FAERS Safety Report 4747096-5 (Version None)
Quarter: 2005Q3

REPORT INFORMATION
  Report Type: 
  Country: None (occurrence: None)
  Receive Date: 20050815
  Receipt Date: 20050809
  Transmission Date: 20060218
  Serious: Yes (Death, Other)
  Sender: FDA-Public Use
  Company Number: HQWYE162012JUL05

PATIENT
  Age: 65 Year
  Sex: Male
  Weight: 89.8 kg

DRUGS (3)
  1. MYLOTARG [Suspect]
     Indication: ACUTE MYELOID LEUKAEMIA
     Dosage: 6 MG/M^2, INTRAVENOUS  ; 4.2 MG/M^2, INTRAVENOUS
     Route: 042
     Dates: start: 20050603, end: 20050603
  2. MYLOTARG [Suspect]
     Indication: ACUTE MYELOID LEUKAEMIA
     Dosage: 6 MG/M^2, INTRAVENOUS  ; 4.2 MG/M^2, INTRAVENOUS
     Route: 042
     Dates: start: 20050611, end: 20050611
  3. CYTARABINE [Suspect]
     Indication: ACUTE MYELOID LEUKAEMIA
     Dosage: 200 MG/M^2 DAY 1-7 FOR A TOTAL CUMULATIVE DOSE OF 2800 MG, INTRAVENOUS
     Route: 042
     Dates: start: 20050604, end: 20050610

REACTIONS (6)
  - ANOREXIA [None]
  - CONFUSIONAL STATE [None]
  - DYSPHAGIA [None]
  - ENTEROCOLITIS [None]
  - PLATELET COUNT DECREASED [None]
  - WHITE BLOOD CELL COUNT DECREASED [None]
